FAERS Safety Report 6691417-3 (Version None)
Quarter: 2010Q2

REPORT INFORMATION
  Report Type: 
  Country: None (occurrence: None)
  Receive Date: 20100422
  Receipt Date: 20100414
  Transmission Date: 20101027
  Serious: Yes (Death)
  Sender: FDA-Public Use
  Company Number: AU-CELGENEUS-008-21880-10032187

PATIENT
  Sex: Male
  Weight: 70 kg

DRUGS (1)
  1. REVLIMID [Suspect]
     Route: 048
     Dates: start: 20091228, end: 20100208

REACTIONS (3)
  - DRUG INEFFECTIVE [None]
  - INFECTION [None]
  - MYELODYSPLASTIC SYNDROME [None]
